FAERS Safety Report 15876614 (Version 2)
Quarter: 2019Q1

REPORT INFORMATION
  Report Type: Spontaneous
  Country: US (occurrence: US)
  Receive Date: 20190127
  Receipt Date: 20190131
  Transmission Date: 20190417
  Serious: No
  Sender: FDA-Public Use
  Company Number: US-TEVA-2019-US-1003918

PATIENT
  Age: 39 Year
  Sex: Female
  Weight: 68 kg

DRUGS (8)
  1. VITAMIN D [Concomitant]
     Active Substance: CHOLECALCIFEROL
     Indication: PRODUCT USED FOR UNKNOWN INDICATION
  2. BOTOX [Concomitant]
     Active Substance: ONABOTULINUMTOXINA
     Indication: MIGRAINE
  3. AJOVY [Suspect]
     Active Substance: FREMANEZUMAB-VFRM
     Indication: MIGRAINE
     Dates: start: 20181129
  4. PROBIOTIC [Concomitant]
     Active Substance: PROBIOTICS NOS
     Indication: PRODUCT USED FOR UNKNOWN INDICATION
  5. KRILL OIL [Concomitant]
     Active Substance: DIETARY SUPPLEMENT
     Indication: PRODUCT USED FOR UNKNOWN INDICATION
  6. ULTRACET [Concomitant]
     Active Substance: ACETAMINOPHEN\TRAMADOL HYDROCHLORIDE
     Indication: MIGRAINE
  7. KEPPRA [Concomitant]
     Active Substance: LEVETIRACETAM
     Indication: MIGRAINE
  8. ZYRTEC-D ALLERGY AND CONGESTION [Concomitant]
     Active Substance: CETIRIZINE HYDROCHLORIDE\PSEUDOEPHEDRINE HYDROCHLORIDE
     Indication: HYPERSENSITIVITY

REACTIONS (10)
  - Inappropriate schedule of product administration [Unknown]
  - Headache [Not Recovered/Not Resolved]
  - Migraine [Unknown]
  - Dizziness [Unknown]
  - Feeling abnormal [Unknown]
  - Vomiting [Unknown]
  - Job dissatisfaction [Unknown]
  - Nausea [Unknown]
  - Migraine [Recovered/Resolved]
  - Drug ineffective [Unknown]

NARRATIVE: CASE EVENT DATE: 20181129
